FAERS Safety Report 13766724 (Version 1)
Quarter: 2017Q3

REPORT INFORMATION
  Report Type: Spontaneous
  Country: US (occurrence: US)
  Receive Date: 20170719
  Receipt Date: 20170719
  Transmission Date: 20171127
  Serious: No
  Sender: FDA-Public Use
  Company Number: US-B.I. PHARMACEUTICALS,INC./RIDGEFIELD-2017-BI-039958

PATIENT
  Age: 73 Year
  Sex: Male

DRUGS (3)
  1. OFEV [Suspect]
     Active Substance: NINTEDANIB
     Indication: IDIOPATHIC PULMONARY FIBROSIS
     Dosage: TWICE PER DAY;  FORM STRENGTH: 150 MG; FORMULATION: CAPSULE? ADMINISTRATION CORRECT? YES ?ACTION(S)
     Route: 048
     Dates: start: 201703, end: 20170713
  2. LOTRIL [Concomitant]
     Active Substance: ENALAPRIL MALEATE
     Indication: MYOCARDIAL INFARCTION
     Dosage: DAILY;  FORM STRENGTH: 20MG; FORMULATION: TABLET
     Route: 048
  3. ASPIRIN. [Concomitant]
     Active Substance: ASPIRIN
     Indication: MYOCARDIAL INFARCTION
     Dosage: DAILY;  FORM STRENGTH: 81MG; FORMULATION: TABLET
     Route: 048

REACTIONS (2)
  - Haemorrhoids [Recovered/Resolved]
  - Diarrhoea [Not Recovered/Not Resolved]

NARRATIVE: CASE EVENT DATE: 201703
